FAERS Safety Report 8776634 (Version 1)
Quarter: 2012Q4

REPORT INFORMATION
  Report Type: 
  Country: JP (occurrence: JP)
  Receive Date: 20120910
  Receipt Date: 20120910
  Transmission Date: 20130627
  Serious: Yes (Hospitalization)
  Sender: FDA-Public Use
  Company Number: PHHY2012JP078001

PATIENT
  Age: 64 Year
  Sex: Female

DRUGS (1)
  1. TEGRETOL [Suspect]
     Indication: AGITATION POSTOPERATIVE
     Dosage: 200 mg, QD
     Route: 048
     Dates: start: 2012, end: 20120902

REACTIONS (6)
  - Memory impairment [Unknown]
  - Eczema [Unknown]
  - Erythema [Unknown]
  - Dizziness [Unknown]
  - Decreased appetite [Unknown]
  - Intentional drug misuse [Unknown]
